FAERS Safety Report 12069960 (Version 4)
Quarter: 2016Q1

REPORT INFORMATION
  Report Type: Report from Study
  Country: DE (occurrence: DE)
  Receive Date: 20160211
  Receipt Date: 20160322
  Transmission Date: 20160526
  Serious: Yes (Hospitalization, Other)
  Sender: FDA-Public Use
  Company Number: DE-009507513-1602DEU003410

PATIENT
  Age: 61 Year
  Sex: Female
  Weight: 73 kg

DRUGS (8)
  1. PEGASYS [Suspect]
     Active Substance: PEGINTERFERON ALFA-2A
     Indication: CHRONIC HEPATITIS C
     Dosage: 180 MICROGRAM, QW
     Route: 058
     Dates: start: 20130521, end: 201308
  2. SPIRONOLACTONE. [Concomitant]
     Active Substance: SPIRONOLACTONE
     Indication: HEPATIC CIRRHOSIS
     Dosage: 50 MG, QD
     Dates: start: 20120501, end: 201308
  3. PANTOPRAZOLE [Concomitant]
     Active Substance: PANTOPRAZOLE SODIUM
     Indication: GASTRITIS
     Dosage: UNK
     Dates: start: 20120501, end: 20130813
  4. COPEGUS [Suspect]
     Active Substance: RIBAVIRIN
     Dosage: 1000 MG, QD
     Route: 048
     Dates: start: 20130612, end: 201308
  5. COPEGUS [Suspect]
     Active Substance: RIBAVIRIN
     Dosage: 200 MG, QD
     Route: 048
     Dates: start: 201308
  6. BOCEPREVIR [Suspect]
     Active Substance: BOCEPREVIR
     Indication: CHRONIC HEPATITIS C
     Dosage: 800 MG, TID
     Route: 048
     Dates: start: 20130612, end: 20130905
  7. COPEGUS [Suspect]
     Active Substance: RIBAVIRIN
     Indication: CHRONIC HEPATITIS C
     Dosage: 1200 MG, QD
     Route: 048
     Dates: start: 20130420, end: 20130612
  8. PEGASYS [Suspect]
     Active Substance: PEGINTERFERON ALFA-2A
     Dosage: 135 MICROGRAM, QW
     Route: 058
     Dates: start: 201308, end: 20130905

REACTIONS (34)
  - Dysstasia [Unknown]
  - Pancytopenia [Unknown]
  - Dizziness [Unknown]
  - Transaminases increased [Unknown]
  - Dehydration [Unknown]
  - Troponin increased [Unknown]
  - General physical health deterioration [Unknown]
  - Hyponatraemia [Not Recovered/Not Resolved]
  - Inflammatory marker increased [Recovered/Resolved]
  - Gastrooesophageal reflux disease [Unknown]
  - Gastritis erosive [Unknown]
  - Rhabdomyolysis [Recovering/Resolving]
  - Dehydration [Recovered/Resolved]
  - Decreased appetite [Recovered/Resolved]
  - Thrombocytopenia [Unknown]
  - Cardiovascular disorder [Unknown]
  - Polyuria [Unknown]
  - Vomiting [Unknown]
  - Asthenia [Not Recovered/Not Resolved]
  - Anaemia [Recovered/Resolved]
  - Decreased appetite [Recovered/Resolved]
  - Pyrexia [Unknown]
  - Peripheral nerve lesion [Unknown]
  - Angiodysplasia [Unknown]
  - General physical health deterioration [Unknown]
  - Fatigue [Recovered/Resolved]
  - Anaemia macrocytic [Unknown]
  - Nausea [Unknown]
  - Mucosal exfoliation [Unknown]
  - Cystitis haemorrhagic [Unknown]
  - Dizziness [Unknown]
  - Coagulopathy [Unknown]
  - Pancytopenia [Unknown]
  - Varices oesophageal [Unknown]

NARRATIVE: CASE EVENT DATE: 2013
